FAERS Safety Report 24069796 (Version 1)
Quarter: 2024Q3

REPORT INFORMATION
  Report Type: Report from Study
  Country: CA (occurrence: CA)
  Receive Date: 20240710
  Receipt Date: 20240710
  Transmission Date: 20241017
  Serious: No
  Sender: ROCHE
  Company Number: CA-ROCHE-3534820

PATIENT
  Age: 78 Year
  Sex: Male

DRUGS (10)
  1. VABYSMO [Suspect]
     Active Substance: FARICIMAB\FARICIMAB-SVOA
     Indication: Neovascular age-related macular degeneration
     Route: 050
     Dates: start: 20230803
  2. AVASTIN [Suspect]
     Active Substance: BEVACIZUMAB
     Indication: Neovascular age-related macular degeneration
     Route: 065
     Dates: start: 20230628
  3. AVASTIN [Suspect]
     Active Substance: BEVACIZUMAB
     Route: 065
     Dates: start: 20230530
  4. AVASTIN [Suspect]
     Active Substance: BEVACIZUMAB
     Route: 065
     Dates: start: 20230503
  5. AVASTIN [Suspect]
     Active Substance: BEVACIZUMAB
     Route: 065
     Dates: start: 20230405
  6. EYLEA [Concomitant]
     Active Substance: AFLIBERCEPT
     Dates: start: 20231102
  7. EYLEA [Concomitant]
     Active Substance: AFLIBERCEPT
     Dates: start: 20231004
  8. EYLEA [Concomitant]
     Active Substance: AFLIBERCEPT
     Dates: start: 20230908
  9. EYLEA [Concomitant]
     Active Substance: AFLIBERCEPT
     Dates: start: 20230803
  10. LUCENTIS [Concomitant]
     Active Substance: RANIBIZUMAB

REACTIONS (3)
  - Visual impairment [Unknown]
  - Mass [Unknown]
  - Off label use [Unknown]

NARRATIVE: CASE EVENT DATE: 20240101
